FAERS Safety Report 14553868 (Version 1)
Quarter: 2018Q1

REPORT INFORMATION
  Report Type: Spontaneous
  Country: US (occurrence: US)
  Receive Date: 20180216
  Receipt Date: 20180216
  Transmission Date: 20180509
  Serious: No
  Sender: FDA-Public Use
  Company Number: None

PATIENT
  Sex: Female
  Weight: 76.2 kg

DRUGS (2)
  1. ACTEMRA [Suspect]
     Active Substance: TOCILIZUMAB
     Indication: RHEUMATOID ARTHRITIS
     Route: 058
     Dates: start: 201405
  2. ACTEMRA [Suspect]
     Active Substance: TOCILIZUMAB
     Indication: OSTEOPOROSIS
     Route: 058
     Dates: start: 201405

REACTIONS (2)
  - Pneumonia [None]
  - Tooth infection [None]
